FAERS Safety Report 24369408 (Version 1)
Quarter: 2024Q3

REPORT INFORMATION
  Report Type: Report from Study
  Country: US (occurrence: US)
  Receive Date: 20240927
  Receipt Date: 20240927
  Transmission Date: 20241017
  Serious: No
  Sender: ROCHE
  Company Number: US-ROCHE-3344525

PATIENT
  Age: 56 Year
  Sex: Female

DRUGS (12)
  1. LUCENTIS [Suspect]
     Active Substance: RANIBIZUMAB
     Indication: Retinal vein occlusion
     Dosage: 3X3 ML PREFILLED PENS
     Route: 058
  2. LUCENTIS [Suspect]
     Active Substance: RANIBIZUMAB
     Indication: Diabetic retinopathy
  3. LUCENTIS [Suspect]
     Active Substance: RANIBIZUMAB
     Indication: Type 2 diabetes mellitus
  4. LUCENTIS [Suspect]
     Active Substance: RANIBIZUMAB
     Indication: Retinal aneurysm
  5. LUCENTIS [Suspect]
     Active Substance: RANIBIZUMAB
     Indication: Retinopathy hypertensive
  6. LUCENTIS [Suspect]
     Active Substance: RANIBIZUMAB
     Indication: Cataract nuclear
  7. LUCENTIS [Suspect]
     Active Substance: RANIBIZUMAB
     Indication: Macular oedema
  8. IMITREX [Concomitant]
     Active Substance: SUMATRIPTAN SUCCINATE
     Route: 048
  9. TRESIBA [Concomitant]
     Active Substance: INSULIN DEGLUDEC
     Dosage: 100 UNIT/ML INJECTABLE SOLUTION
  10. NOVOLOG [Concomitant]
     Active Substance: INSULIN ASPART
     Dosage: 100 UNIT/ML INJECTABLE SOLUTION
  11. TETRAHYDROZOLINE HYDROCHLORIDE [Concomitant]
     Active Substance: TETRAHYDROZOLINE HYDROCHLORIDE
     Dosage: PRN OU
  12. AMLODIPINE BESYLATE [Concomitant]
     Active Substance: AMLODIPINE BESYLATE

REACTIONS (4)
  - Arthralgia [Unknown]
  - Dizziness [Unknown]
  - Eye pain [Unknown]
  - Headache [Unknown]
